FAERS Safety Report 4847274-0 (Version None)
Quarter: 2005Q4

REPORT INFORMATION
  Report Type: 
  Country: None (occurrence: None)
  Receive Date: 20051205
  Receipt Date: 20051205
  Transmission Date: 20060501
  Serious: Yes (Hospitalization)
  Sender: FDA-Public Use
  Company Number: None

PATIENT
  Sex: Female
  Weight: 75 kg

DRUGS (1)
  1. DOCETAXEL [Suspect]
     Indication: LUNG NEOPLASM MALIGNANT
     Dosage: IV DRIP   (DAY 1 EVERY 3 WEEKS)
     Route: 041
     Dates: start: 20050930, end: 20051114

REACTIONS (9)
  - CELLULITIS [None]
  - DISCOMFORT [None]
  - EXTRAVASATION [None]
  - HYPOAESTHESIA [None]
  - INFUSION SITE BRUISING [None]
  - INFUSION SITE ERYTHEMA [None]
  - INFUSION SITE REACTION [None]
  - PRURITUS [None]
  - TENDERNESS [None]
